FAERS Safety Report 12916555 (Version 1)
Quarter: 2016Q4

REPORT INFORMATION
  Report Type: Spontaneous
  Country: US (occurrence: US)
  Receive Date: 20161107
  Receipt Date: 20161107
  Transmission Date: 20170207
  Serious: No
  Sender: FDA-Public Use
  Company Number: US-JAZZ-2016-US-015600

PATIENT
  Age: 39 Year
  Sex: Female

DRUGS (26)
  1. MULTIVITAMIN [Concomitant]
     Active Substance: VITAMINS
  2. PREDNISONE. [Concomitant]
     Active Substance: PREDNISONE
  3. VITAMIN D2 [Concomitant]
     Active Substance: ERGOCALCIFEROL
  4. ALLEGRA ALLERGY [Concomitant]
     Active Substance: FEXOFENADINE HYDROCHLORIDE
  5. IBUPROFEN. [Concomitant]
     Active Substance: IBUPROFEN
  6. PROVIGIL [Concomitant]
     Active Substance: MODAFINIL
  7. DIAZEPAM. [Concomitant]
     Active Substance: DIAZEPAM
  8. ADDERALL [Concomitant]
     Active Substance: AMPHETAMINE ASPARTATE\AMPHETAMINE SULFATE\DEXTROAMPHETAMINE SACCHARATE\DEXTROAMPHETAMINE SULFATE
  9. NORCO [Concomitant]
     Active Substance: ACETAMINOPHEN\HYDROCODONE BITARTRATE
  10. OXYCODONE HYDROCHLORIDE. [Concomitant]
     Active Substance: OXYCODONE HYDROCHLORIDE
  11. VITAMIN D2 [Concomitant]
     Active Substance: ERGOCALCIFEROL
  12. DIVIGEL [Concomitant]
     Active Substance: ESTRADIOL
  13. XYREM [Suspect]
     Active Substance: SODIUM OXYBATE
     Indication: NARCOLEPSY
     Dosage: 2.25 G, BID
     Route: 048
     Dates: start: 201001, end: 201002
  14. XYREM [Suspect]
     Active Substance: SODIUM OXYBATE
     Dosage: DOSE ADJUSTMENTS
     Route: 048
     Dates: start: 201002, end: 201606
  15. DICYCLOMINE [Concomitant]
     Active Substance: DICYCLOMINE HYDROCHLORIDE
  16. LORTAB [Concomitant]
     Active Substance: ACETAMINOPHEN\HYDROCODONE BITARTRATE
  17. PROMETHAZINE HCL [Concomitant]
     Active Substance: PROMETHAZINE HYDROCHLORIDE
  18. BENADRYL-D ALLERGY AND SINUS [Concomitant]
     Active Substance: DIPHENHYDRAMINE HYDROCHLORIDE\PHENYLEPHRINE HYDROCHLORIDE
  19. CYCLOBENZAPRINE [Concomitant]
     Active Substance: CYCLOBENZAPRINE
  20. PROMETHAZINE [Concomitant]
     Active Substance: PROMETHAZINE\PROMETHAZINE HYDROCHLORIDE
  21. ROBAXIN [Concomitant]
     Active Substance: METHOCARBAMOL
  22. VITAMIN B12 [Concomitant]
     Active Substance: CYANOCOBALAMIN
  23. XYREM [Suspect]
     Active Substance: SODIUM OXYBATE
     Dosage: 4.25 G, BID
     Route: 048
     Dates: start: 201606
  24. PERCOCET [Concomitant]
     Active Substance: ACETAMINOPHEN\OXYCODONE HYDROCHLORIDE
  25. NUVIGIL [Concomitant]
     Active Substance: ARMODAFINIL
  26. VITAMIN D3 [Concomitant]
     Active Substance: CHOLECALCIFEROL

REACTIONS (2)
  - Endodontic procedure [Unknown]
  - Apicectomy [Unknown]

NARRATIVE: CASE EVENT DATE: 20161005
